FAERS Safety Report 5716972-9 (Version None)
Quarter: 2008Q2

REPORT INFORMATION
  Report Type: 
  Country: None (occurrence: None)
  Receive Date: 20080424
  Receipt Date: 20080414
  Transmission Date: 20081010
  Serious: Yes (Hospitalization)
  Sender: FDA-Public Use
  Company Number: US-MERCK-0705USA05340

PATIENT
  Age: 84 Year
  Sex: Female

DRUGS (1)
  1. FOSAMAX PLUS D [Suspect]
     Indication: BACK INJURY
     Route: 048
     Dates: start: 20050201, end: 20050501

REACTIONS (9)
  - ABDOMINAL WALL DISORDER [None]
  - DENTAL CARIES [None]
  - GASTRIC DISORDER [None]
  - HEAD INJURY [None]
  - ORAL INFECTION [None]
  - ORAL PAIN [None]
  - RHEUMATOID ARTHRITIS [None]
  - SWELLING [None]
  - TEMPOROMANDIBULAR JOINT SYNDROME [None]
